FAERS Safety Report 9107258 (Version 3)
Quarter: 2013Q2

REPORT INFORMATION
  Report Type: Report from Study
  Country: US (occurrence: US)
  Receive Date: 20130221
  Receipt Date: 20130610
  Transmission Date: 20140414
  Serious: Yes (Hospitalization)
  Sender: FDA-Public Use
  Company Number: US-ACTELION-A-NJ2013-79692

PATIENT
  Age: 89 Year
  Sex: Female

DRUGS (2)
  1. VENTAVIS [Suspect]
     Indication: PULMONARY ARTERIAL HYPERTENSION
     Dosage: UNK
     Route: 055
  2. OXYGEN [Concomitant]

REACTIONS (6)
  - Fall [Unknown]
  - Upper limb fracture [Unknown]
  - Laceration [Unknown]
  - Bowel movement irregularity [Unknown]
  - Malaise [Unknown]
  - Drug dose omission [Unknown]
